FAERS Safety Report 15295783 (Version 1)
Quarter: 2018Q3

REPORT INFORMATION
  Report Type: Spontaneous
  Country: US (occurrence: US)
  Receive Date: 20180807
  Receipt Date: 20180807
  Transmission Date: 20181010
  Serious: No
  Sender: FDA-Public Use
  Company Number: None

PATIENT
  Age: 24 Year
  Sex: Male
  Weight: 58.97 kg

DRUGS (1)
  1. CIPRO [Suspect]
     Active Substance: CIPROFLOXACIN HYDROCHLORIDE
     Indication: EPIDIDYMITIS
     Dosage: ?          QUANTITY:500 MG MILLIGRAM(S);?1 PILL
     Route: 048
     Dates: start: 20180601, end: 20180601

REACTIONS (5)
  - Muscle twitching [None]
  - Pain in extremity [None]
  - Muscle tightness [None]
  - Paraesthesia [None]
  - Chest pain [None]

NARRATIVE: CASE EVENT DATE: 20180601
